FAERS Safety Report 5464771-8 (Version None)
Quarter: 2007Q3

REPORT INFORMATION
  Report Type: 
  Country: None (occurrence: None)
  Receive Date: 20070820
  Receipt Date: 20070710
  Transmission Date: 20080115
  Serious: No
  Sender: FDA-Public Use
  Company Number: TPA2007A01489

PATIENT
  Age: 72 Year
  Sex: Female
  Weight: 79.3795 kg

DRUGS (5)
  1. ROZEREM [Suspect]
     Indication: INSOMNIA
     Dosage: 8 MG, QHS AS REQUIRED, PER ORAL
     Route: 048
     Dates: start: 20070101
  2. MULTIVITAMIN [Concomitant]
  3. GLUCOSAMINE/ CHONDROITIN (CHONDROITIN SULFATE, GLUCOSAMINE SULFATE) [Concomitant]
  4. ASPIRIN [Concomitant]
  5. PREVACID [Concomitant]

REACTIONS (2)
  - DRUG INEFFECTIVE [None]
  - INITIAL INSOMNIA [None]
